FAERS Safety Report 6591356-2 (Version None)
Quarter: 2010Q1

REPORT INFORMATION
  Report Type: 
  Country: None (occurrence: None)
  Receive Date: 20100219
  Receipt Date: 20100209
  Transmission Date: 20100710
  Serious: Yes (Other)
  Sender: FDA-Public Use
  Company Number: US-JNJCH-2010004095

PATIENT
  Age: 46 Year
  Sex: Female
  Weight: 56.7 kg

DRUGS (3)
  1. BENADRYL [Suspect]
     Indication: MIDDLE EAR EFFUSION
     Dosage: TEXT:56 ULTRATABS IN 45 DAYS
     Route: 048
  2. NASACORT [Concomitant]
     Indication: HYPERSENSITIVITY
     Dosage: TEXT:1 SPRAY PER DAY
     Route: 065
  3. NASONEX [Concomitant]
     Indication: HYPERSENSITIVITY
     Dosage: TEXT:1 SPRAY PER DAY
     Route: 065

REACTIONS (2)
  - BLOOD URINE PRESENT [None]
  - OFF LABEL USE [None]
